FAERS Safety Report 8066145-2 (Version None)
Quarter: 2012Q1

REPORT INFORMATION
  Report Type: 
  Country: None (occurrence: None)
  Receive Date: 20120124
  Receipt Date: 20120112
  Transmission Date: 20120608
  Serious: Yes (Hospitalization)
  Sender: FDA-Public Use
  Company Number: FR-SANOFI-AVENTIS-2012SA003725

PATIENT
  Age: 84 Year
  Sex: Male

DRUGS (11)
  1. EZETIMIBE [Suspect]
     Dosage: DOSE: 10/40 MG
     Route: 048
  2. ASPIRIN [Suspect]
     Route: 048
  3. PLAVIX [Suspect]
     Route: 048
  4. LASIX [Suspect]
     Route: 048
     Dates: start: 20110901
  5. ALLOPURINOL [Suspect]
     Route: 048
     Dates: end: 20111123
  6. ATACAND [Suspect]
     Route: 048
     Dates: end: 20111123
  7. NITRODERM [Suspect]
     Route: 062
  8. NEXIUM [Suspect]
     Route: 048
     Dates: end: 20111123
  9. BISOPROLOL FUMARATE [Suspect]
     Route: 048
  10. PHENOBARBITAL TAB [Suspect]
     Indication: EPILEPSY
     Route: 048
  11. DEPAKENE [Suspect]
     Indication: EPILEPSY
     Route: 048

REACTIONS (2)
  - CONDITION AGGRAVATED [None]
  - APLASTIC ANAEMIA [None]
